FAERS Safety Report 18535918 (Version 1)
Quarter: 2020Q4

REPORT INFORMATION
  Report Type: Report from Study
  Country: US (occurrence: US)
  Receive Date: 20201123
  Receipt Date: 20201123
  Transmission Date: 20210114
  Serious: Yes (Death)
  Sender: FDA-Public Use
  Company Number: US-GE HEALTHCARE LIFE SCIENCES-DATS-PR-1202C-0008

PATIENT
  Age: 70 Year
  Sex: Male
  Weight: 114.35 kg

DRUGS (1)
  1. DATSCAN [Suspect]
     Active Substance: IODINE\IOFLUPANE I-123
     Indication: DEMENTIA ALZHEIMER^S TYPE
     Dosage: 179.08 MBQ, SINGLE
     Route: 042
     Dates: start: 20120119, end: 20120119

REACTIONS (1)
  - Haemorrhagic stroke [Fatal]

NARRATIVE: CASE EVENT DATE: 20120205
